FAERS Safety Report 22205348 (Version 1)
Quarter: 2023Q2

REPORT INFORMATION
  Report Type: Other
  Country: US (occurrence: None)
  Receive Date: 20230413
  Receipt Date: 20230413
  Transmission Date: 20230721
  Serious: Yes (Other)
  Sender: FDA-Public Use
  Company Number: US-ROCHE-3327101

PATIENT
  Sex: Female
  Weight: 95.3 kg

DRUGS (2)
  1. PERJETA [Suspect]
     Active Substance: PERTUZUMAB
     Indication: Breast cancer female
     Route: 042
     Dates: start: 202301
  2. HERCEPTIN [Suspect]
     Active Substance: TRASTUZUMAB
     Indication: Breast cancer female
     Route: 065
     Dates: start: 202301

REACTIONS (3)
  - Pneumonia [Recovered/Resolved]
  - Malaise [Unknown]
  - General physical health deterioration [Not Recovered/Not Resolved]
